FAERS Safety Report 12600060 (Version 3)
Quarter: 2016Q3

REPORT INFORMATION
  Report Type: Report from Study
  Country: AR (occurrence: AR)
  Receive Date: 20160727
  Receipt Date: 20160906
  Transmission Date: 20161109
  Serious: Yes (Hospitalization, Other)
  Sender: FDA-Public Use
  Company Number: PHHY2016AR101542

PATIENT
  Age: 65 Year
  Sex: Female

DRUGS (9)
  1. IPRATROPIUM BROMIDE. [Concomitant]
     Active Substance: IPRATROPIUM BROMIDE
     Indication: PRODUCT USED FOR UNKNOWN INDICATION
     Route: 065
  2. MELOXICAM. [Concomitant]
     Active Substance: MELOXICAM
     Indication: ARTHRALGIA
     Dosage: 150 MG, UNK
     Route: 065
  3. LEVOTHYROXINE. [Concomitant]
     Active Substance: LEVOTHYROXINE
     Indication: PRODUCT USED FOR UNKNOWN INDICATION
     Route: 065
  4. DIOVAN D [Suspect]
     Active Substance: HYDROCHLOROTHIAZIDE\VALSARTAN
     Indication: HYPERTENSION
     Dosage: (VALSARTAN 160, HYDROCHLOROTHIAZIDE 12.5) (3 YEARS AGO APPROXIMATELY)
     Route: 065
  5. MELOXICAM. [Concomitant]
     Active Substance: MELOXICAM
     Indication: INFLAMMATION
  6. DIOVAN [Suspect]
     Active Substance: VALSARTAN
     Indication: HYPERTENSION
     Dosage: 1 DF (VALSARTAN 160 MG), QD (3 YEARS AGO APPROXIMATELY)
     Route: 065
  7. VITAMIN D [Concomitant]
     Active Substance: CHOLECALCIFEROL
     Indication: PRODUCT USED FOR UNKNOWN INDICATION
     Dosage: 1 DF,QMO (1 DOSE PER MONTH)
     Route: 065
  8. MELOXICAM. [Concomitant]
     Active Substance: MELOXICAM
     Indication: OSTEOARTHRITIS
  9. SALBUTAMOL SULFATE [Concomitant]
     Active Substance: ALBUTEROL SULFATE
     Indication: PRODUCT USED FOR UNKNOWN INDICATION
     Route: 065

REACTIONS (30)
  - Chest discomfort [Unknown]
  - Bronchial disorder [Unknown]
  - Pneumonia [Recovering/Resolving]
  - Cough [Unknown]
  - Swelling [Unknown]
  - Movement disorder [Unknown]
  - Muscle spasms [Unknown]
  - Abdominal pain [Unknown]
  - Spinal compression fracture [Unknown]
  - Dyspnoea [Unknown]
  - Pyrexia [Unknown]
  - Hyperhidrosis [Unknown]
  - Respiration abnormal [Unknown]
  - Sciatica [Unknown]
  - Hepatic steatosis [Unknown]
  - General physical health deterioration [Unknown]
  - Visual acuity reduced [Unknown]
  - Chronic obstructive pulmonary disease [Unknown]
  - Pneumonitis [Unknown]
  - Reading disorder [Unknown]
  - Glaucoma [Unknown]
  - Lung disorder [Unknown]
  - Nephrolithiasis [Not Recovered/Not Resolved]
  - Hepatomegaly [Unknown]
  - Pain [Unknown]
  - Malaise [Not Recovered/Not Resolved]
  - Memory impairment [Unknown]
  - Renal aneurysm [Not Recovered/Not Resolved]
  - Influenza [Unknown]
  - Hepatitis [Unknown]

NARRATIVE: CASE EVENT DATE: 201607
